FAERS Safety Report 9098978 (Version 3)
Quarter: 2013Q2

REPORT INFORMATION
  Report Type: Report from Study
  Country: US (occurrence: US)
  Receive Date: 20130213
  Receipt Date: 20130408
  Transmission Date: 20140414
  Serious: Yes (Other)
  Sender: FDA-Public Use
  Company Number: US-NAPPMUNDI-USA-2013-0098687

PATIENT
  Age: 60 Year
  Sex: Male

DRUGS (1)
  1. OXYCONTIN (NDA 22-272) [Suspect]
     Indication: PRODUCT USED FOR UNKNOWN INDICATION
     Dosage: 40 MG, 1 TABLET BID AND 1 TABLET EVERY EVENING
     Route: 048

REACTIONS (3)
  - Staphylococcal infection [Unknown]
  - Furuncle [Not Recovered/Not Resolved]
  - Pain [Not Recovered/Not Resolved]
